FAERS Safety Report 9805277 (Version 1)
Quarter: 2014Q1

REPORT INFORMATION
  Report Type: Spontaneous
  Country: US (occurrence: None)
  Receive Date: 20140107
  Receipt Date: 20140107
  Transmission Date: 20141002
  Serious: Yes (Hospitalization)
  Sender: FDA-Public Use
  Company Number: None

PATIENT
  Age: 70 Year
  Sex: Male
  Weight: 79.6 kg

DRUGS (2)
  1. CEFTRIAXONE [Suspect]
     Indication: UPPER RESPIRATORY TRACT INFECTION
     Route: 042
     Dates: start: 20130226, end: 20130226
  2. CEFTRIAXONE [Suspect]
     Indication: URINARY TRACT INFECTION
     Route: 042
     Dates: start: 20130226, end: 20130226

REACTIONS (1)
  - Anaphylactic reaction [None]
